FAERS Safety Report 9028100 (Version 9)
Quarter: 2016Q3

REPORT INFORMATION
  Report Type: Report from Study
  Country: BR (occurrence: BR)
  Receive Date: 20130123
  Receipt Date: 20160802
  Transmission Date: 20161109
  Serious: Yes (Other)
  Sender: FDA-Public Use
  Company Number: PHHY2013BR005465

PATIENT
  Age: 57 Year
  Sex: Female
  Weight: 65 kg

DRUGS (7)
  1. EXJADE [Suspect]
     Active Substance: DEFERASIROX
     Dosage: 15 MG/KG, QD (2 DF OF 500 MG)
     Route: 048
     Dates: start: 201501, end: 201512
  2. HYDREA [Suspect]
     Active Substance: HYDROXYUREA
     Indication: BLOOD IRON INCREASED
     Dosage: 2 DF, QD
     Route: 048
     Dates: start: 2002, end: 201302
  3. EXJADE [Suspect]
     Active Substance: DEFERASIROX
     Indication: SICKLE CELL ANAEMIA
     Dosage: 25 MG/KG, QD (3 DF OF 500 MG)
     Route: 048
  4. ENDOFOLIN [Concomitant]
     Active Substance: FOLIC ACID
     Indication: SICKLE CELL ANAEMIA
     Dosage: 1 DF, QD
     Route: 048
     Dates: start: 1984
  5. EXJADE [Suspect]
     Active Substance: DEFERASIROX
     Dosage: 15 MG/KG, QD (2 DF OF 500 MG)
     Route: 048
  6. CLORANA [Concomitant]
     Active Substance: HYDROCHLOROTHIAZIDE
     Indication: HYPERTENSION
     Dosage: 0.5 DF, QD
     Route: 048
  7. ATENOLOL W/NIFEDIPINE [Concomitant]
     Indication: HYPERTENSION
     Dosage: 2 DF, QD
     Route: 048

REACTIONS (17)
  - Hypophagia [Recovering/Resolving]
  - Dysgeusia [Not Recovered/Not Resolved]
  - Diarrhoea [Recovered/Resolved]
  - Weight decreased [Recovered/Resolved]
  - Osteonecrosis [Recovering/Resolving]
  - Renal disorder [Unknown]
  - Onychomadesis [Unknown]
  - Vomiting [Unknown]
  - Syncope [Recovered/Resolved]
  - Vomiting [Recovered/Resolved]
  - Serum ferritin increased [Unknown]
  - Nail pigmentation [Recovering/Resolving]
  - Dysstasia [Unknown]
  - Malaise [Recovering/Resolving]
  - Nephrolithiasis [Unknown]
  - Liver disorder [Unknown]
  - Asthenia [Recovering/Resolving]

NARRATIVE: CASE EVENT DATE: 2008
